FAERS Safety Report 4801187-9 (Version None)
Quarter: 2005Q4

REPORT INFORMATION
  Report Type: 
  Country: None (occurrence: None)
  Receive Date: 20051011
  Receipt Date: 20050928
  Transmission Date: 20060501
  Serious: Yes (Death, Other)
  Sender: FDA-Public Use
  Company Number: 2005137050

PATIENT
  Age: 73 Year
  Sex: Female

DRUGS (4)
  1. CLINDAMYCIN PHOSPHATE [Suspect]
     Indication: ILL-DEFINED DISORDER
     Dates: start: 20040101, end: 20040101
  2. MEROPEN (MEROPENEM) [Concomitant]
     Indication: ILL-DEFINED DISORDER
     Dosage: INTRAVENOUS
     Route: 042
     Dates: start: 20040101, end: 20040101
  3. MINOCYCLINE HCL [Concomitant]
  4. CEFMETAZON (CEFMETAZOLE SODIUM) [Concomitant]

REACTIONS (11)
  - CATHETER RELATED INFECTION [None]
  - DIALYSIS [None]
  - DRUG HYPERSENSITIVITY [None]
  - ENDOCARDITIS [None]
  - ERYTHEMA [None]
  - OCCULT BLOOD POSITIVE [None]
  - PRURITUS [None]
  - RENAL IMPAIRMENT [None]
  - SEPTIC SHOCK [None]
  - TUBULOINTERSTITIAL NEPHRITIS [None]
  - WHITE BLOOD CELL COUNT DECREASED [None]
